FAERS Safety Report 9111291 (Version 1)
Quarter: 2013Q1

REPORT INFORMATION
  Report Type: Spontaneous
  Country: US (occurrence: US)
  Receive Date: 20130219
  Receipt Date: 20130219
  Transmission Date: 20140127
  Serious: No
  Sender: FDA-Public Use
  Company Number: US-BRISTOL-MYERS SQUIBB COMPANY-16380701

PATIENT
  Age: 63 Year
  Sex: Male
  Weight: 98 kg

DRUGS (6)
  1. ORENCIA [Suspect]
     Indication: RHEUMATOID ARTHRITIS
     Route: 042
     Dates: start: 201103
  2. METHOTREXATE [Concomitant]
  3. TOPROL [Concomitant]
  4. ANAPRIL [Concomitant]
  5. PREDNISONE [Concomitant]
  6. FOLIC ACID [Concomitant]

REACTIONS (2)
  - Nasopharyngitis [Recovering/Resolving]
  - Oropharyngeal pain [Recovering/Resolving]
